FAERS Safety Report 4559643-7 (Version None)
Quarter: 2005Q1

REPORT INFORMATION
  Report Type: 
  Country: None (occurrence: None)
  Receive Date: 20050113
  Receipt Date: 20041029
  Transmission Date: 20050727
  Serious: Yes (Other)
  Sender: FDA-Public Use
  Company Number: 377398

PATIENT
  Age: 42 Year
  Sex: Male
  Weight: 68 kg

DRUGS (5)
  1. FUZEON [Suspect]
     Indication: DRUG USE FOR UNKNOWN INDICATION
     Dosage: 90 MG    2 PER DAY    SUBCUTANEOUS
     Route: 058
  2. VIDEX EC [Suspect]
     Indication: HIV INFECTION
     Dosage: 250 MG DAILY    ORAL
     Route: 048
     Dates: start: 20040714
  3. KALETRA [Concomitant]
  4. VIREAD [Concomitant]
  5. ZIAGEN [Concomitant]

REACTIONS (1)
  - BLOOD CREATINE PHOSPHOKINASE INCREASED [None]
